FAERS Safety Report 16509713 (Version 2)
Quarter: 2019Q3

REPORT INFORMATION
  Report Type: Spontaneous
  Country: GB (occurrence: GB)
  Receive Date: 20190702
  Receipt Date: 20190909
  Transmission Date: 20191004
  Serious: Yes (Other)
  Sender: FDA-Public Use
  Company Number: GB-SUN PHARMACEUTICAL INDUSTRIES LTD-2019RR-212316

PATIENT
  Age: 53 Year
  Sex: Female

DRUGS (7)
  1. RAMIPRIL. [Suspect]
     Active Substance: RAMIPRIL
     Indication: AMYLOIDOSIS
     Dosage: 2.5 MILLIGRAM, DAILY
     Route: 065
  2. SPIRONOLACTONE. [Suspect]
     Active Substance: SPIRONOLACTONE
     Indication: AMYLOIDOSIS
     Dosage: UNK
     Route: 065
  3. VELCADE [Suspect]
     Active Substance: BORTEZOMIB
     Indication: AMYLOIDOSIS
     Dosage: 3 CYCLES, 1 MILLIGRAM/SQ. METER, DAYS 1, 4, 8, 11
     Route: 065
     Dates: start: 201410
  4. ACE INHIBITOR [Suspect]
     Active Substance: UNSPECIFIED INGREDIENT
     Indication: AMYLOIDOSIS
     Route: 065
  5. DEXAMETHASONE. [Suspect]
     Active Substance: DEXAMETHASONE
     Indication: AMYLOIDOSIS
     Dosage: 3 CYCLES, 10 X 2 MG DAYS 1, 4, 8, 11
     Route: 065
     Dates: start: 201410
  6. CYCLOPHOSPHAMIDE. [Suspect]
     Active Substance: CYCLOPHOSPHAMIDE
     Indication: AMYLOIDOSIS
     Dosage: 3 CYCLES, 10 X 50 MILLIGRAM
     Route: 065
     Dates: start: 201410
  7. THALIDOMIDE [Suspect]
     Active Substance: THALIDOMIDE
     Indication: AMYLOIDOSIS
     Dosage: 4 CYCLES
     Route: 065

REACTIONS (4)
  - Diarrhoea [Unknown]
  - Vomiting [Unknown]
  - Acute kidney injury [Unknown]
  - Drug ineffective [Unknown]
